FAERS Safety Report 24134171 (Version 1)
Quarter: 2024Q3

REPORT INFORMATION
  Report Type: Spontaneous
  Country: GB (occurrence: GB)
  Receive Date: 20240724
  Receipt Date: 20240724
  Transmission Date: 20241017
  Serious: Yes (Disabling, Other)
  Sender: BIOGEN
  Company Number: GB-BIOGEN-2024BI01274684

PATIENT
  Sex: Female

DRUGS (1)
  1. TECFIDERA [Suspect]
     Active Substance: DIMETHYL FUMARATE
     Indication: Multiple sclerosis
     Route: 050

REACTIONS (3)
  - Nerve injury [Unknown]
  - Viral infection [Recovered/Resolved with Sequelae]
  - Herpes zoster [Unknown]

NARRATIVE: CASE EVENT DATE: 20220810
